FAERS Safety Report 24541401 (Version 1)
Quarter: 2024Q4

REPORT INFORMATION
  Report Type: Report from Study
  Country: IT (occurrence: IT)
  Receive Date: 20241023
  Receipt Date: 20241023
  Transmission Date: 20250115
  Serious: Yes (Other)
  Sender: UCB
  Company Number: IT-UCBSA-2024054838

PATIENT

DRUGS (1)
  1. BIMEKIZUMAB [Suspect]
     Active Substance: BIMEKIZUMAB
     Indication: Psoriasis
     Dosage: UNK

REACTIONS (4)
  - Oesophageal candidiasis [Unknown]
  - Systemic candida [Unknown]
  - Genital candidiasis [Unknown]
  - Oral candidiasis [Unknown]
